FAERS Safety Report 22268831 (Version 1)
Quarter: 2023Q2

REPORT INFORMATION
  Report Type: Report from Study
  Country: RO (occurrence: RO)
  Receive Date: 20230501
  Receipt Date: 20230501
  Transmission Date: 20230722
  Serious: Yes (Other)
  Sender: FDA-Public Use
  Company Number: RO-002147023-NVSC2023RO081140

PATIENT
  Age: 41 Year
  Sex: Female

DRUGS (3)
  1. PIQRAY [Suspect]
     Active Substance: ALPELISIB
     Indication: Breast neoplasm
     Dosage: 150 MG, QD (CAPSULE)
     Route: 048
     Dates: start: 202207, end: 202207
  2. PIQRAY [Suspect]
     Active Substance: ALPELISIB
     Dosage: 150 MG, QD (CAPSULE)
     Route: 048
     Dates: start: 202209, end: 202209
  3. PIQRAY [Suspect]
     Active Substance: ALPELISIB
     Dosage: UNK
     Route: 065
     Dates: start: 202303

REACTIONS (7)
  - Rash macular [Recovered/Resolved]
  - Swollen tongue [Recovered/Resolved]
  - Somnolence [Recovered/Resolved]
  - Drug intolerance [Recovered/Resolved]
  - Rash macular [Recovered/Resolved]
  - Swelling face [Recovered/Resolved]
  - Hypersensitivity [Unknown]

NARRATIVE: CASE EVENT DATE: 20220701
